FAERS Safety Report 6395402-0 (Version None)
Quarter: 2009Q4

REPORT INFORMATION
  Report Type: 
  Country: None (occurrence: None)
  Receive Date: 20091009
  Receipt Date: 20091002
  Transmission Date: 20100525
  Serious: Yes (Death, Hospitalization)
  Sender: FDA-Public Use
  Company Number: FR-TEVA-209652ISR

PATIENT
  Sex: Male

DRUGS (15)
  1. IRINOTECAN HCL [Suspect]
     Indication: METASTATIC GASTRIC CANCER
     Route: 042
     Dates: start: 20080103, end: 20080105
  2. FLUOROURACIL [Suspect]
     Indication: METASTATIC GASTRIC CANCER
     Route: 042
     Dates: start: 20080103, end: 20080105
  3. FOLINIC ACID [Suspect]
     Indication: METASTATIC GASTRIC CANCER
     Route: 042
     Dates: start: 20080103, end: 20080105
  4. TPN [Suspect]
  5. FENTANYL-100 [Concomitant]
     Dates: start: 20071213
  6. ENOXAPARIN SODIUM [Concomitant]
     Dates: start: 20071208
  7. RIFAMPICIN [Concomitant]
     Dates: start: 20080121, end: 20080208
  8. CIPROFLOXACIN HYDROCHLORIDE [Concomitant]
     Dates: start: 20080121, end: 20080208
  9. PREDNISOLONE SODIUM SULFOBENZOATE [Concomitant]
     Dates: start: 20080121
  10. CLOMIPRAMINE HCL [Concomitant]
     Dates: start: 20080121
  11. OMEPRAZOLE [Concomitant]
     Dates: start: 20071213
  12. BROMAZEPAM [Concomitant]
     Dates: start: 20071208
  13. ZOLEDRONIC ACID [Concomitant]
  14. ZOLPIDEM [Concomitant]
     Dates: start: 20071220
  15. METOCLOPRAMIDE [Concomitant]
     Dates: start: 20071226

REACTIONS (2)
  - ASTHENIA [None]
  - DEATH [None]
